FAERS Safety Report 13469131 (Version 1)
Quarter: 2017Q2

REPORT INFORMATION
  Report Type: Report from Study
  Country: US (occurrence: US)
  Receive Date: 20170421
  Receipt Date: 20170421
  Transmission Date: 20170830
  Serious: Yes (Hospitalization, Other)
  Sender: FDA-Public Use
  Company Number: US-BAXALTA-2017BLT003150

PATIENT
  Age: 9 Year
  Sex: Male
  Weight: 92.9 kg

DRUGS (3)
  1. ADVATE [Suspect]
     Active Substance: ANTIHEMOPHILIC FACTOR, HUMAN RECOMBINANT
     Indication: FACTOR VIII DEFICIENCY
     Dosage: 5000 U, 3X A WEEK
     Route: 042
     Dates: start: 2008
  2. ADVATE [Suspect]
     Active Substance: ANTIHEMOPHILIC FACTOR, HUMAN RECOMBINANT
     Indication: HAEMORRHAGE
     Dosage: UNK
     Dates: start: 200401, end: 2008
  3. ADVATE [Suspect]
     Active Substance: ANTIHEMOPHILIC FACTOR, HUMAN RECOMBINANT
     Indication: PROPHYLAXIS

REACTIONS (5)
  - Haemarthrosis [Recovered/Resolved]
  - Haemarthrosis [Not Recovered/Not Resolved]
  - Haemarthrosis [Recovered/Resolved]
  - Factor VIII inhibition [Recovered/Resolved]
  - Haemorrhage [Recovered/Resolved]

NARRATIVE: CASE EVENT DATE: 201401
